FAERS Safety Report 10475803 (Version 1)
Quarter: 2014Q3

REPORT INFORMATION
  Report Type: Spontaneous
  Country: US (occurrence: US)
  Receive Date: 20140925
  Receipt Date: 20140925
  Transmission Date: 20150326
  Serious: No
  Sender: FDA-Public Use
  Company Number: US-GLAXOSMITHKLINE-A1062524A

PATIENT
  Age: 67 Year
  Sex: Female

DRUGS (5)
  1. UNKNOWN MEDICATION [Concomitant]
     Active Substance: UNSPECIFIED INGREDIENT
  2. METFORMIN [Suspect]
     Active Substance: METFORMIN HYDROCHLORIDE
     Indication: TYPE 2 DIABETES MELLITUS
     Dosage: 1000MG PER DAY
     Route: 048
     Dates: start: 201401
  3. WELLBUTRIN [Suspect]
     Active Substance: BUPROPION HYDROCHLORIDE
     Indication: MENTAL DISORDER
     Dosage: 150MG TWICE PER DAY
     Route: 048
  4. AMLODIPINE [Concomitant]
     Active Substance: AMLODIPINE BESYLATE
  5. COREG [Suspect]
     Active Substance: CARVEDILOL
     Indication: BLOOD PRESSURE
     Dosage: 25MG TWICE PER DAY
     Route: 048

REACTIONS (8)
  - Adrenal disorder [Unknown]
  - Dizziness [Unknown]
  - Blood pressure abnormal [Unknown]
  - Cough [Unknown]
  - Malaise [Unknown]
  - Influenza [Recovering/Resolving]
  - Blood glucose increased [Unknown]
  - Dyspnoea [Unknown]

NARRATIVE: CASE EVENT DATE: 201401
